FAERS Safety Report 5392484-X (Version None)
Quarter: 2007Q3

REPORT INFORMATION
  Report Type: 
  Country: None (occurrence: None)
  Receive Date: 20070720
  Receipt Date: 20070719
  Transmission Date: 20080115
  Serious: Yes (Other)
  Sender: FDA-Public Use
  Company Number: US-ASTRAZENECA-2007UW07518

PATIENT
  Sex: Female

DRUGS (1)
  1. ARIMIDEX [Suspect]
     Route: 048

REACTIONS (5)
  - ARTHRALGIA [None]
  - ASTHENIA [None]
  - PAIN IN EXTREMITY [None]
  - PLANTAR FASCIITIS [None]
  - VULVOVAGINAL DRYNESS [None]
